FAERS Safety Report 12912395 (Version 1)
Quarter: 2016Q4

REPORT INFORMATION
  Report Type: Spontaneous
  Country: US (occurrence: US)
  Receive Date: 20161104
  Receipt Date: 20161104
  Transmission Date: 20170207
  Serious: No
  Sender: FDA-Public Use
  Company Number: US-009507513-1610USA005985

PATIENT
  Age: 37 Year
  Sex: Female
  Weight: 68.03 kg

DRUGS (2)
  1. BELSOMRA [Suspect]
     Active Substance: SUVOREXANT
     Indication: INSOMNIA
     Dosage: 10 MG, ONCE DAILY IN THE EVENING/AFTERNOON (PM)
     Route: 048
  2. BELSOMRA [Suspect]
     Active Substance: SUVOREXANT
     Dosage: 10 MG, ONCE DAILY IN THE EVENING/AFTERNOON (PM)
     Route: 048

REACTIONS (1)
  - Abnormal dreams [Unknown]
